FAERS Safety Report 8732414 (Version 2)
Quarter: 2012Q4

REPORT INFORMATION
  Report Type: 
  Country: US (occurrence: US)
  Receive Date: 20120820
  Receipt Date: 20120920
  Transmission Date: 20130627
  Serious: Yes (Other)
  Sender: FDA-Public Use
  Company Number: US-PFIZER INC-2012202127

PATIENT
  Age: 58 Year
  Sex: Female
  Weight: 63.49 kg

DRUGS (3)
  1. CHANTIX [Suspect]
     Indication: SMOKING CESSATION THERAPY
     Dosage: 0.5 mg, 1x/day
     Dates: start: 20120703, end: 201207
  2. CHANTIX [Suspect]
     Dosage: 0.5 mg, 2x/day
     Route: 048
     Dates: start: 201207, end: 201207
  3. CHANTIX [Suspect]
     Dosage: 1 mg, 2x/day
     Dates: start: 201207, end: 20120815

REACTIONS (8)
  - Urinary tract infection [Recovered/Resolved]
  - Kidney infection [Recovered/Resolved]
  - Pyelonephritis [Recovered/Resolved]
  - Cystitis [Unknown]
  - Abnormal dreams [Unknown]
  - Dysuria [Unknown]
  - Pyrexia [Recovered/Resolved]
  - Chills [Unknown]
